FAERS Safety Report 20146189 (Version 7)
Quarter: 2023Q1

REPORT INFORMATION
  Report Type: Report from Study
  Country: FR (occurrence: FR)
  Receive Date: 20211203
  Receipt Date: 20230328
  Transmission Date: 20230417
  Serious: Yes (Hospitalization, Other)
  Sender: FDA-Public Use
  Company Number: FR-TAKEDA-FR201813962

PATIENT
  Age: 49 Year
  Sex: Male
  Weight: 62 kg

DRUGS (123)
  1. TEDUGLUTIDE [Suspect]
     Active Substance: TEDUGLUTIDE
     Indication: Short-bowel syndrome
     Dosage: 3.4 MILLIGRAM, QD
     Route: 042
     Dates: start: 20160511, end: 20160603
  2. TEDUGLUTIDE [Suspect]
     Active Substance: TEDUGLUTIDE
     Indication: Short-bowel syndrome
     Dosage: 3.4 MILLIGRAM, QD
     Route: 042
     Dates: start: 20160511, end: 20160603
  3. TEDUGLUTIDE [Suspect]
     Active Substance: TEDUGLUTIDE
     Indication: Short-bowel syndrome
     Dosage: 3.4 MILLIGRAM, QD
     Route: 042
     Dates: start: 20160511, end: 20160603
  4. TEDUGLUTIDE [Suspect]
     Active Substance: TEDUGLUTIDE
     Indication: Short-bowel syndrome
     Dosage: 3.4 MILLIGRAM, QD
     Route: 042
     Dates: start: 20160511, end: 20160603
  5. TEDUGLUTIDE [Suspect]
     Active Substance: TEDUGLUTIDE
     Dosage: 3.2 MILLIGRAM, QD
     Route: 042
     Dates: start: 20160603, end: 20160704
  6. TEDUGLUTIDE [Suspect]
     Active Substance: TEDUGLUTIDE
     Dosage: 3.2 MILLIGRAM, QD
     Route: 042
     Dates: start: 20160603, end: 20160704
  7. TEDUGLUTIDE [Suspect]
     Active Substance: TEDUGLUTIDE
     Dosage: 3.2 MILLIGRAM, QD
     Route: 042
     Dates: start: 20160603, end: 20160704
  8. TEDUGLUTIDE [Suspect]
     Active Substance: TEDUGLUTIDE
     Dosage: 3.2 MILLIGRAM, QD
     Route: 042
     Dates: start: 20160603, end: 20160704
  9. TEDUGLUTIDE [Suspect]
     Active Substance: TEDUGLUTIDE
     Dosage: 3 MILLIGRAM, QD
     Route: 042
     Dates: start: 20160704, end: 20160824
  10. TEDUGLUTIDE [Suspect]
     Active Substance: TEDUGLUTIDE
     Dosage: 3 MILLIGRAM, QD
     Route: 042
     Dates: start: 20160704, end: 20160824
  11. TEDUGLUTIDE [Suspect]
     Active Substance: TEDUGLUTIDE
     Dosage: 3 MILLIGRAM, QD
     Route: 042
     Dates: start: 20160704, end: 20160824
  12. TEDUGLUTIDE [Suspect]
     Active Substance: TEDUGLUTIDE
     Dosage: 3 MILLIGRAM, QD
     Route: 042
     Dates: start: 20160704, end: 20160824
  13. TEDUGLUTIDE [Suspect]
     Active Substance: TEDUGLUTIDE
     Dosage: 3.1 MILLIGRAM, QD
     Route: 042
     Dates: start: 20160824, end: 20160920
  14. TEDUGLUTIDE [Suspect]
     Active Substance: TEDUGLUTIDE
     Dosage: 3.1 MILLIGRAM, QD
     Route: 042
     Dates: start: 20160824, end: 20160920
  15. TEDUGLUTIDE [Suspect]
     Active Substance: TEDUGLUTIDE
     Dosage: 3.1 MILLIGRAM, QD
     Route: 042
     Dates: start: 20160824, end: 20160920
  16. TEDUGLUTIDE [Suspect]
     Active Substance: TEDUGLUTIDE
     Dosage: 3.1 MILLIGRAM, QD
     Route: 042
     Dates: start: 20160824, end: 20160920
  17. TEDUGLUTIDE [Suspect]
     Active Substance: TEDUGLUTIDE
     Dosage: 3 MILLIGRAM, QD
     Route: 042
     Dates: start: 20160920, end: 20170328
  18. TEDUGLUTIDE [Suspect]
     Active Substance: TEDUGLUTIDE
     Dosage: 3 MILLIGRAM, QD
     Route: 042
     Dates: start: 20160920, end: 20170328
  19. TEDUGLUTIDE [Suspect]
     Active Substance: TEDUGLUTIDE
     Dosage: 3 MILLIGRAM, QD
     Route: 042
     Dates: start: 20160920, end: 20170328
  20. TEDUGLUTIDE [Suspect]
     Active Substance: TEDUGLUTIDE
     Dosage: 3 MILLIGRAM, QD
     Route: 042
     Dates: start: 20160920, end: 20170328
  21. TEDUGLUTIDE [Suspect]
     Active Substance: TEDUGLUTIDE
     Dosage: 2.8 MILLIGRAM, QD
     Route: 042
     Dates: start: 20170329, end: 20170526
  22. TEDUGLUTIDE [Suspect]
     Active Substance: TEDUGLUTIDE
     Dosage: 2.8 MILLIGRAM, QD
     Route: 042
     Dates: start: 20170329, end: 20170526
  23. TEDUGLUTIDE [Suspect]
     Active Substance: TEDUGLUTIDE
     Dosage: 2.8 MILLIGRAM, QD
     Route: 042
     Dates: start: 20170329, end: 20170526
  24. TEDUGLUTIDE [Suspect]
     Active Substance: TEDUGLUTIDE
     Dosage: 2.8 MILLIGRAM, QD
     Route: 042
     Dates: start: 20170329, end: 20170526
  25. BISOPROLOL FUMARATE [Concomitant]
     Active Substance: BISOPROLOL FUMARATE
     Indication: Ischaemic cardiomyopathy
     Dosage: 2.50 MILLIGRAM, QD
     Route: 048
     Dates: start: 20140624, end: 20141205
  26. BISOPROLOL FUMARATE [Concomitant]
     Active Substance: BISOPROLOL FUMARATE
     Indication: Hypertension
     Dosage: 2.50 MILLIGRAM, QD
     Route: 048
     Dates: end: 201403
  27. BISOPROLOL FUMARATE [Concomitant]
     Active Substance: BISOPROLOL FUMARATE
     Indication: Myocardial ischaemia
     Dosage: 2.50 MILLIGRAM, QD
     Route: 048
     Dates: start: 20171205
  28. CALCIDOSE [Concomitant]
     Indication: Supplementation therapy
     Route: 065
  29. FERINJECT [Concomitant]
     Active Substance: FERRIC CARBOXYMALTOSE
     Indication: Anaemia
     Route: 065
  30. LOVENOX [Concomitant]
     Active Substance: ENOXAPARIN SODIUM
     Indication: Vena cava thrombosis
     Dosage: 4000 INTERNATIONAL UNIT, QD
     Route: 058
     Dates: start: 201706
  31. LOVENOX [Concomitant]
     Active Substance: ENOXAPARIN SODIUM
     Indication: Thrombosis prophylaxis
  32. THIAMINE HYDROCHLORIDE [Concomitant]
     Active Substance: THIAMINE HYDROCHLORIDE
     Indication: Supplementation therapy
     Route: 065
  33. VITAMIN B6 [Concomitant]
     Active Substance: PYRIDOXINE HYDROCHLORIDE
     Indication: Supplementation therapy
     Route: 065
  34. PAROXETINE HYDROCHLORIDE [Concomitant]
     Active Substance: PAROXETINE HYDROCHLORIDE
     Indication: Depression
     Route: 065
  35. KAYEXALATE [Concomitant]
     Active Substance: SODIUM POLYSTYRENE SULFONATE
     Indication: Supplementation therapy
     Dosage: 30 MILLIGRAM, QD
     Route: 048
     Dates: start: 201402, end: 20140330
  36. KAYEXALATE [Concomitant]
     Active Substance: SODIUM POLYSTYRENE SULFONATE
     Indication: Hyperkalaemia
  37. VEDOLIZUMAB [Concomitant]
     Active Substance: VEDOLIZUMAB
     Indication: Crohn^s disease
     Dosage: UNK UNK, QD
     Route: 065
  38. VEDOLIZUMAB [Concomitant]
     Active Substance: VEDOLIZUMAB
     Dosage: 300 MILLIGRAM, QD
     Route: 042
     Dates: start: 20190302, end: 20190502
  39. VEDOLIZUMAB [Concomitant]
     Active Substance: VEDOLIZUMAB
     Dosage: 300 MILLIGRAM, QD
     Route: 042
     Dates: start: 20190821, end: 20190821
  40. VEDOLIZUMAB [Concomitant]
     Active Substance: VEDOLIZUMAB
     Dosage: 300 MILLIGRAM, QD
     Route: 042
     Dates: start: 20190626
  41. BISOPROLOL [Concomitant]
     Active Substance: BISOPROLOL
     Indication: Blood pressure increased
     Dosage: 1.25 MILLIGRAM, QD
     Route: 048
     Dates: start: 20190201
  42. CHOLECALCIFEROL [Concomitant]
     Active Substance: CHOLECALCIFEROL
     Indication: Thrombosis prophylaxis
     Dosage: 40 MILLIGRAM, QD
     Route: 048
     Dates: start: 20180218
  43. CHOLECALCIFEROL [Concomitant]
     Active Substance: CHOLECALCIFEROL
     Indication: Supplementation therapy
     Dosage: 4000 INTERNATIONAL UNIT
     Route: 048
     Dates: start: 201402, end: 201405
  44. CHOLECALCIFEROL [Concomitant]
     Active Substance: CHOLECALCIFEROL
     Dosage: 8000 INTERNATIONAL UNIT
     Route: 048
     Dates: start: 20180218
  45. WARFARIN SODIUM [Concomitant]
     Active Substance: WARFARIN SODIUM
     Indication: Supplementation therapy
     Dosage: 2 MILLIGRAM, QD
     Route: 048
     Dates: start: 20180218
  46. FOLIC ACID [Concomitant]
     Active Substance: FOLIC ACID
     Indication: Thrombosis prophylaxis
     Dosage: 6 MILLIGRAM, QD
     Route: 048
     Dates: start: 20180218
  47. FOLIC ACID [Concomitant]
     Active Substance: FOLIC ACID
     Dosage: 5 MILLIGRAM, QD
     Route: 048
     Dates: start: 20180218
  48. KARDEGIC [Concomitant]
     Active Substance: ASPIRIN DL-LYSINE
     Indication: Thrombosis
     Dosage: 75 MILLIGRAM, QD
     Route: 048
     Dates: start: 201304, end: 20131104
  49. KARDEGIC [Concomitant]
     Active Substance: ASPIRIN DL-LYSINE
     Indication: Arterial disorder
     Dosage: 160 MILLIGRAM, QD
     Route: 048
     Dates: start: 20131104, end: 201402
  50. KARDEGIC [Concomitant]
     Active Substance: ASPIRIN DL-LYSINE
     Dosage: 160 MILLIGRAM, QD
     Route: 042
     Dates: start: 201402, end: 20160427
  51. KARDEGIC [Concomitant]
     Active Substance: ASPIRIN DL-LYSINE
     Dosage: 76 MILLIGRAM, QD
     Route: 058
     Dates: start: 201706, end: 2017
  52. KARDEGIC [Concomitant]
     Active Substance: ASPIRIN DL-LYSINE
     Dosage: 75 MILLIGRAM, QD
     Route: 048
     Dates: start: 20160427
  53. THIAMINE BETA.HYDROXYETHYLDISULFIDE [Concomitant]
     Indication: Supplementation therapy
     Dosage: 260 MILLIGRAM, BID
     Route: 048
     Dates: start: 2017, end: 2017
  54. OFLOXACIN [Concomitant]
     Active Substance: OFLOXACIN
     Indication: Device related infection
     Dosage: 200 MILLIGRAM, BID
     Route: 048
     Dates: start: 20140120, end: 201401
  55. CEFTAZIDIME [Concomitant]
     Active Substance: CEFTAZIDIME
     Indication: Device related infection
     Dosage: 3 GRAM, QD
     Route: 048
     Dates: start: 20140120, end: 201401
  56. CEFTAZIDIME [Concomitant]
     Active Substance: CEFTAZIDIME
     Dosage: 2 GRAM, QD
     Route: 042
     Dates: start: 20170518, end: 20170519
  57. GENTAMYCINE B.BRAUN [Concomitant]
     Indication: Sepsis
     Dosage: 8 MILLIGRAM, QD
     Route: 042
     Dates: start: 201402, end: 201402
  58. CEFTRIAXONE SODIUM [Concomitant]
     Active Substance: CEFTRIAXONE SODIUM
     Indication: Sepsis
     Dosage: 2 GRAM, QD
     Route: 042
     Dates: start: 201402, end: 201402
  59. CEFTRIAXONE SODIUM [Concomitant]
     Active Substance: CEFTRIAXONE SODIUM
     Dosage: 1 GRAM, QD
     Route: 042
     Dates: start: 201402, end: 201402
  60. ALBUTEROL [Concomitant]
     Active Substance: ALBUTEROL
     Indication: Arterial disorder
     Dosage: 1.26 MILLIGRAM, QD
     Route: 042
     Dates: start: 201405
  61. ALBUTEROL [Concomitant]
     Active Substance: ALBUTEROL
     Dosage: 1.26 MILLIGRAM
     Route: 042
     Dates: start: 201405
  62. RAMIPRIL [Concomitant]
     Active Substance: RAMIPRIL
     Indication: Hypertension
     Dosage: 1.25 MILLIGRAM, QD
     Route: 048
     Dates: start: 20140124
  63. SODIUM BICARBONATE [Concomitant]
     Active Substance: SODIUM BICARBONATE
     Indication: Supplementation therapy
     Dosage: 1 GRAM, TID
     Route: 048
     Dates: start: 2016, end: 2017
  64. POTASSIUM AMINOBENZOATE [Concomitant]
     Indication: Hypokalaemia
     Dosage: 2 GRAM, QD
     Route: 042
     Dates: start: 20170331
  65. ESOMEPRAZOLE [Concomitant]
     Active Substance: ESOMEPRAZOLE
     Indication: Short-bowel syndrome
     Dosage: 20 MILLIGRAM, QD
     Route: 048
     Dates: start: 2014
  66. ESOMEPRAZOLE [Concomitant]
     Active Substance: ESOMEPRAZOLE
     Dosage: 40 MILLIGRAM, QD
     Route: 048
     Dates: start: 20131104, end: 2014
  67. VANCOMYCIN [Concomitant]
     Active Substance: VANCOMYCIN
     Indication: Sepsis
     Dosage: 2 GRAM, QD
     Route: 042
     Dates: start: 201703, end: 201703
  68. VANCOMYCIN [Concomitant]
     Active Substance: VANCOMYCIN
     Dosage: 760 MILLIGRAM, QID
     Dates: start: 20170317, end: 20170519
  69. VANCOMYCIN [Concomitant]
     Active Substance: VANCOMYCIN
     Dosage: 1 GRAM, QD
     Route: 042
     Dates: start: 201703, end: 201703
  70. DAPTOMYCIN [Concomitant]
     Active Substance: DAPTOMYCIN
     Indication: Device related infection
     Dosage: 600 MILLIGRAM, QD
     Route: 042
     Dates: start: 20170519, end: 20170527
  71. DAPTOMYCIN [Concomitant]
     Active Substance: DAPTOMYCIN
     Dosage: 500 MILLIGRAM, QD
     Route: 042
     Dates: start: 20170519, end: 20170531
  72. LOVENOX [Concomitant]
     Active Substance: ENOXAPARIN SODIUM
     Indication: Thrombosis
     Dosage: 4000 INTERNATIONAL UNIT, QD
     Route: 058
  73. LOVENOX [Concomitant]
     Active Substance: ENOXAPARIN SODIUM
     Dosage: 6000 INTERNATIONAL UNIT, QD
     Route: 058
     Dates: start: 20180218
  74. VEDOLIZUMAB [Concomitant]
     Active Substance: VEDOLIZUMAB
     Indication: Crohn^s disease
     Dosage: 300 MILLIGRAM
     Route: 042
     Dates: start: 20190302, end: 20190502
  75. VEDOLIZUMAB [Concomitant]
     Active Substance: VEDOLIZUMAB
     Dosage: 300 MILLIGRAM
     Route: 042
     Dates: start: 20190821, end: 20190821
  76. VEDOLIZUMAB [Concomitant]
     Active Substance: VEDOLIZUMAB
     Dosage: 300 MILLIGRAM
     Route: 042
     Dates: start: 20190626
  77. BISOPROLOL [Concomitant]
     Active Substance: BISOPROLOL
     Indication: Blood pressure increased
     Dosage: 1.25 MILLIGRAM, QD
     Route: 048
     Dates: start: 20190201
  78. ALBUMIN HUMAN [Concomitant]
     Active Substance: ALBUMIN HUMAN
     Indication: Short-bowel syndrome
     Dosage: 20 GRAM, QD
     Route: 048
     Dates: start: 20180112, end: 20180114
  79. KAYEXALATE [Concomitant]
     Active Substance: SODIUM POLYSTYRENE SULFONATE
     Indication: Sepsis
     Dosage: 1.60 MILLIGRAM, QD
     Route: 042
     Dates: start: 20180218
  80. KAYEXALATE [Concomitant]
     Active Substance: SODIUM POLYSTYRENE SULFONATE
     Indication: Hyperthermia
  81. KAYEXALATE [Concomitant]
     Active Substance: SODIUM POLYSTYRENE SULFONATE
     Indication: Device related infection
  82. PAROXETINE HYDROCHLORIDE [Concomitant]
     Active Substance: PAROXETINE HYDROCHLORIDE
     Indication: Depression
     Dosage: 16 GRAM, QD
     Route: 048
  83. PAROXETINE HYDROCHLORIDE [Concomitant]
     Active Substance: PAROXETINE HYDROCHLORIDE
     Dosage: 250 MILLIGRAM, QD
     Route: 048
     Dates: start: 20180218, end: 2018
  84. PHOSPHORUS [Concomitant]
     Active Substance: PHOSPHORUS
     Indication: Supplementation therapy
     Dosage: 26 MILLIGRAM, BID
     Route: 048
  85. MAGNESIUM [Concomitant]
     Active Substance: MAGNESIUM
     Indication: Supplementation therapy
     Dosage: 2 DOSAGE FORM, TID
     Route: 048
     Dates: start: 201706, end: 2017
  86. MAGNESIUM [Concomitant]
     Active Substance: MAGNESIUM
     Dosage: 3 DOSAGE FORM, TID
     Route: 048
  87. PLAVIX [Concomitant]
     Active Substance: CLOPIDOGREL BISULFATE
     Indication: Arterial disorder
     Dosage: 75 MILLIGRAM, QD
     Route: 048
     Dates: start: 201304
  88. PANTOPRAZOLE [Concomitant]
     Active Substance: PANTOPRAZOLE
     Indication: Nausea
     Dosage: 20 MILLIGRAM, QD
     Route: 048
     Dates: start: 201307, end: 2013
  89. TAHOR [Concomitant]
     Active Substance: ATORVASTATIN CALCIUM
     Indication: Dyslipidaemia
     Dosage: 40 MILLIGRAM, QD
     Route: 048
     Dates: end: 20170213
  90. TAHOR [Concomitant]
     Active Substance: ATORVASTATIN CALCIUM
     Dosage: 40 MILLIGRAM, QD
     Route: 048
     Dates: start: 20180218
  91. VITAMIN B12 [Concomitant]
     Active Substance: CYANOCOBALAMIN
     Indication: Supplementation therapy
     Dosage: 1000 MICROGRAM, QD
     Route: 048
     Dates: start: 201412, end: 2018
  92. VITAMIN B12 [Concomitant]
     Active Substance: CYANOCOBALAMIN
     Indication: Short-bowel syndrome
     Dosage: 1 UNK
     Route: 048
     Dates: start: 20190201
  93. SODIUM BICARBONATE [Concomitant]
     Active Substance: SODIUM BICARBONATE
     Indication: Supplementation therapy
     Dosage: 500 MILLIGRAM, TID
     Route: 048
     Dates: end: 201603
  94. FEBUXOSTAT [Concomitant]
     Active Substance: FEBUXOSTAT
     Indication: Hyperuricaemia
     Dosage: 80 MILLIGRAM, QD
     Route: 048
     Dates: start: 20160709
  95. PAROXETINE [Concomitant]
     Active Substance: PAROXETINE
     Indication: Depression
     Dosage: 20 MILLIGRAM, QD
     Route: 048
     Dates: start: 201412
  96. CLOBAZAM [Concomitant]
     Active Substance: CLOBAZAM
     Indication: Depression
     Dosage: 10 MILLIGRAM, TID
     Route: 048
     Dates: start: 20160227
  97. RAMIPRIL [Concomitant]
     Active Substance: RAMIPRIL
     Indication: Hypertension
     Dosage: 1.25 MILLIGRAM, QD
     Route: 048
     Dates: end: 20140204
  98. HYDROCORTISONE [Concomitant]
     Active Substance: HYDROCORTISONE
     Indication: Adrenocorticotropic hormone deficiency
     Dosage: 5 MILLIGRAM, QD
     Route: 048
     Dates: start: 201304, end: 201307
  99. CALCIUM PHOSPHATE, DIBASIC, ANHYDROUS\MAGNESIUM GLYCEROPHOSPHATE\PHOSP [Concomitant]
     Active Substance: CALCIUM PHOSPHATE, DIBASIC, ANHYDROUS\MAGNESIUM GLYCEROPHOSPHATE\PHOSPHORIC ACID\SODIUM PHOSPHATE, D
     Indication: Supplementation therapy
     Dosage: 20 GTT DROPS, TID
     Route: 048
  100. CALCIUM PHOSPHATE, DIBASIC, ANHYDROUS\MAGNESIUM GLYCEROPHOSPHATE\PHOSP [Concomitant]
     Active Substance: CALCIUM PHOSPHATE, DIBASIC, ANHYDROUS\MAGNESIUM GLYCEROPHOSPHATE\PHOSPHORIC ACID\SODIUM PHOSPHATE, D
     Dosage: 25 GTT DROPS, TID
     Route: 048
     Dates: start: 201706, end: 201706
  101. POTASSIUM CHLORIDE [Concomitant]
     Active Substance: POTASSIUM CHLORIDE
     Indication: Supplementation therapy
     Dosage: 600 MILLIGRAM, QID
     Route: 048
  102. IMOVANE [Concomitant]
     Active Substance: ZOPICLONE
     Indication: Insomnia
     Dosage: 7.50 MILLIGRAM, QD
     Route: 048
  103. LEUCOVORIN CALCIUM [Concomitant]
     Active Substance: LEUCOVORIN CALCIUM
     Indication: Prophylaxis
     Dosage: 5 MILLIGRAM, QD
     Route: 048
     Dates: start: 201307, end: 201307
  104. FERROUS SULFATE [Concomitant]
     Active Substance: FERROUS SULFATE
     Indication: Anaemia
     Dosage: 80 MILLIGRAM, QD
     Route: 048
     Dates: start: 201307
  105. PRISTINAMYCIN [Concomitant]
     Active Substance: PRISTINAMYCIN
     Indication: Subcutaneous abscess
     Dosage: 1 GRAM, TID
     Route: 048
     Dates: start: 201307, end: 201307
  106. IMODIUM [Concomitant]
     Active Substance: LOPERAMIDE HYDROCHLORIDE
     Indication: Short-bowel syndrome
     Dosage: 2 MILLIGRAM
     Route: 048
     Dates: start: 201311
  107. VITAMIN K [Concomitant]
     Active Substance: PHYTONADIONE
     Indication: Supplementation therapy
     Dosage: 10 MILLIGRAM, 1/WEEK
     Route: 042
     Dates: start: 20131104
  108. GENTAMICIN [Concomitant]
     Active Substance: GENTAMICIN
     Indication: Sepsis
     Dosage: 80 MILLIGRAM, QD
     Route: 042
     Dates: start: 201402, end: 201402
  109. GENTAMICIN [Concomitant]
     Active Substance: GENTAMICIN
     Dosage: 80 MILLIGRAM, QD
     Route: 042
     Dates: start: 20160418, end: 20160420
  110. VANCOMYCIN [Concomitant]
     Active Substance: VANCOMYCIN
     Indication: Infection
     Dosage: UNK
     Dates: start: 201402, end: 201402
  111. VANCOMYCIN [Concomitant]
     Active Substance: VANCOMYCIN
     Dosage: 750 MILLIGRAM, BID
     Route: 042
     Dates: start: 20170517, end: 20170519
  112. CALCIUM\CHOLECALCIFEROL [Concomitant]
     Active Substance: CALCIUM\CHOLECALCIFEROL
     Indication: Supplementation therapy
     Dosage: 500 MILLIGRAM, BID
     Route: 048
     Dates: start: 201412
  113. RIFAMPIN [Concomitant]
     Active Substance: RIFAMPIN
     Indication: Infection
     Dosage: 600 MILLIGRAM, BID
     Route: 042
     Dates: start: 20160418, end: 20160502
  114. POTASSIUM [Concomitant]
     Active Substance: POTASSIUM
     Indication: Hyperkalaemia
     Dosage: 2 GRAM, QD
     Route: 042
     Dates: start: 20170331
  115. PYRIDOXINE HYDROCHLORIDE\THIAMINE HYDROCHLORIDE [Concomitant]
     Active Substance: PYRIDOXINE HYDROCHLORIDE\THIAMINE HYDROCHLORIDE
     Indication: Supplementation therapy
     Dosage: 2 DOSAGE FORM, TID
     Route: 048
     Dates: start: 2017, end: 201706
  116. PIPERACILLIN SODIUM [Concomitant]
     Active Substance: PIPERACILLIN SODIUM
     Indication: Infection
     Dosage: 4 GRAM, TID
     Route: 042
     Dates: start: 20170519, end: 20170531
  117. PYRIDOXINE [Concomitant]
     Active Substance: PYRIDOXINE
  118. THIAMINE [Concomitant]
     Active Substance: THIAMINE
     Indication: Supplementation therapy
     Dosage: 250 MILLIGRAM, BID
     Route: 048
     Dates: start: 201706, end: 2017
  119. FERINJECT [Concomitant]
     Active Substance: FERRIC CARBOXYMALTOSE
     Indication: Anaemia
     Dosage: 1 GRAM
     Route: 042
     Dates: start: 20171114, end: 20171114
  120. Calcidose [Concomitant]
     Indication: Supplementation therapy
     Dosage: UNK UNK, TID
     Route: 048
     Dates: start: 20171205
  121. CEFAZOLIN [Concomitant]
     Active Substance: CEFAZOLIN
     Indication: Sepsis
     Dosage: 1.50 MILLIGRAM, QD
     Route: 042
     Dates: start: 20170212, end: 20170212
  122. CEFAZOLIN [Concomitant]
     Active Substance: CEFAZOLIN
     Indication: Hyperthermia
  123. CEFAZOLIN [Concomitant]
     Active Substance: CEFAZOLIN
     Indication: Infection

REACTIONS (7)
  - Pulmonary embolism [Recovered/Resolved]
  - Face oedema [Recovered/Resolved]
  - Oedema peripheral [Recovered/Resolved]
  - Hyperthermia [Recovered/Resolved]
  - Hypoalbuminaemia [Recovered/Resolved]
  - Vitamin A deficiency [Recovered/Resolved]
  - Vitamin D deficiency [Recovered/Resolved]

NARRATIVE: CASE EVENT DATE: 20180111
